APPROVED DRUG PRODUCT: CAFCIT
Active Ingredient: CAFFEINE CITRATE
Strength: EQ 30MG BASE/3ML (EQ 10MG BASE/ML) **Federal Register determination that product was not discontinued or withdrawn for safety or effectiveness reasons**
Dosage Form/Route: SOLUTION;ORAL
Application: N020793 | Product #002
Applicant: HIKMA PHARMACEUTICALS USA INC
Approved: Apr 12, 2000 | RLD: Yes | RS: No | Type: DISCN